FAERS Safety Report 15111226 (Version 1)
Quarter: 2018Q3

REPORT INFORMATION
  Report Type: Spontaneous
  Country: US (occurrence: US)
  Receive Date: 20180705
  Receipt Date: 20180705
  Transmission Date: 20181010
  Serious: No
  Sender: FDA-Public Use
  Company Number: US-SA-2018SA178521

PATIENT
  Age: 66 Year
  Sex: Female

DRUGS (1)
  1. LUMIZYME [Suspect]
     Active Substance: ALGLUCOSIDASE ALFA
     Route: 041

REACTIONS (1)
  - Vertigo [Unknown]

NARRATIVE: CASE EVENT DATE: 20180617
